FAERS Safety Report 10157732 (Version 2)
Quarter: 2014Q2

REPORT INFORMATION
  Report Type: Report from Study
  Country: BR (occurrence: BR)
  Receive Date: 20140507
  Receipt Date: 20140611
  Transmission Date: 20141212
  Serious: Yes (Other)
  Sender: FDA-Public Use
  Company Number: PHHY2014BR053129

PATIENT
  Age: 79 Year
  Sex: Female
  Weight: 50 kg

DRUGS (4)
  1. EXELON PATCH [Suspect]
     Indication: DEMENTIA ALZHEIMER^S TYPE
     Dosage: 4.6 MG (5CM2), QOD
     Route: 062
     Dates: start: 201308
  2. EBIX [Concomitant]
     Indication: DEMENTIA ALZHEIMER^S TYPE
     Dosage: 1 DF, DAILY
     Dates: start: 201403
  3. GALVUS [Concomitant]
     Indication: DIABETES MELLITUS
     Dosage: 2 DF, DAILY
  4. TENSALIV [Concomitant]
     Indication: HYPERTENSION
     Dosage: 1 DF, DAILY

REACTIONS (13)
  - Spinal column stenosis [Unknown]
  - Hand fracture [Unknown]
  - Abasia [Unknown]
  - Fall [Unknown]
  - Hypersomnia [Unknown]
  - Pain [Unknown]
  - Spinal disorder [Unknown]
  - Pain in extremity [Not Recovered/Not Resolved]
  - Spinal pain [Recovered/Resolved]
  - Muscular weakness [Recovering/Resolving]
  - Balance disorder [Unknown]
  - Dementia Alzheimer^s type [Unknown]
  - Memory impairment [Unknown]
